FAERS Safety Report 7198268-4 (Version None)
Quarter: 2010Q4

REPORT INFORMATION
  Report Type: 
  Country: None (occurrence: None)
  Receive Date: 20101227
  Receipt Date: 20101213
  Transmission Date: 20110411
  Serious: Yes (Hospitalization)
  Sender: FDA-Public Use
  Company Number: PHHY2010JP85644

PATIENT
  Sex: Female

DRUGS (7)
  1. DIOVAN [Suspect]
     Dosage: 80 MG, UNK
     Route: 048
     Dates: start: 20090312
  2. ARTIST [Suspect]
     Dosage: 5 MG, UNK
     Route: 048
  3. ALDACTONE [Suspect]
     Dosage: 25 MG, UNK
     Route: 048
  4. PARIET [Concomitant]
     Dosage: 200 MG, UNK
     Route: 048
  5. ITOROL [Concomitant]
     Dosage: 40 MG, UNK
     Route: 048
  6. MEVALOTIN [Concomitant]
     Dosage: 10 MG, UNK
  7. WARFARIN [Concomitant]
     Dosage: 1.5 MG, UNK
     Route: 048

REACTIONS (2)
  - CEREBRAL INFARCTION [None]
  - DIZZINESS [None]
